FAERS Safety Report 7067076-7 (Version None)
Quarter: 2010Q4

REPORT INFORMATION
  Report Type: 
  Country: None (occurrence: None)
  Receive Date: 20101028
  Receipt Date: 20101018
  Transmission Date: 20110411
  Serious: No
  Sender: FDA-Public Use
  Company Number: US-BIOGENIDEC-2010BI036783

PATIENT
  Sex: Female

DRUGS (2)
  1. TYSABRI [Suspect]
     Indication: MULTIPLE SCLEROSIS
     Route: 042
     Dates: start: 20091101
  2. BLOOD PRESSURE MEDICATION (NOS) [Concomitant]
     Indication: HYPERTENSION

REACTIONS (19)
  - ARTHROPOD BITE [None]
  - CRYING [None]
  - CYSTITIS [None]
  - DRY EYE [None]
  - EYE DISCHARGE [None]
  - EYE DISORDER [None]
  - EYE PAIN [None]
  - FATIGUE [None]
  - FOOD ALLERGY [None]
  - GENERAL SYMPTOM [None]
  - HYPERSENSITIVITY [None]
  - HYPERTENSION [None]
  - MIGRAINE [None]
  - MULTIPLE ALLERGIES [None]
  - READING DISORDER [None]
  - SKIN ODOUR ABNORMAL [None]
  - STRESS [None]
  - VISION BLURRED [None]
  - WEIGHT DECREASED [None]
